FAERS Safety Report 10012538 (Version 2)
Quarter: 2014Q2

REPORT INFORMATION
  Report Type: Report from Study
  Country: US (occurrence: US)
  Receive Date: 20140314
  Receipt Date: 20140512
  Transmission Date: 20141212
  Serious: Yes (Hospitalization)
  Sender: FDA-Public Use
  Company Number: US-VERTEX PHARMACEUTICALS INC-2014-001225

PATIENT
  Age: 14 Year
  Sex: Female
  Weight: 53 kg

DRUGS (25)
  1. VX-770 FDC [Suspect]
     Indication: CYSTIC FIBROSIS
     Dosage: UNK
     Route: 048
     Dates: start: 20140219
  2. VX-809 FDC OR PLACEBO [Suspect]
     Indication: CYSTIC FIBROSIS
     Dosage: UNK
     Route: 048
     Dates: start: 20130904, end: 20140219
  3. VX-770 FDC OR PLACEBO [Suspect]
     Indication: CYSTIC FIBROSIS
     Dosage: UNK
     Route: 048
     Dates: start: 20130904, end: 20140219
  4. MEPHYTON [Concomitant]
     Indication: NUTRITIONAL SUPPLEMENTATION
     Dosage: UNK
     Route: 048
     Dates: start: 2012
  5. HYPERSAL 7% [Concomitant]
     Indication: CYSTIC FIBROSIS LUNG
     Dosage: UNK
     Route: 055
     Dates: start: 2010
  6. MIRALAX [Concomitant]
     Indication: CONSTIPATION
     Dosage: UNK
     Route: 048
     Dates: start: 2012
  7. ADVAIR HFA [Concomitant]
     Indication: CYSTIC FIBROSIS LUNG
     Dosage: UNK
     Route: 055
     Dates: start: 2012
  8. CREON [Concomitant]
     Indication: MALABSORPTION
     Dosage: UNK
     Route: 048
     Dates: start: 2003
  9. PROVENTIL [Concomitant]
     Indication: CYSTIC FIBROSIS LUNG
     Dosage: UNK
     Route: 055
     Dates: start: 2003
  10. PREVACID [Concomitant]
     Indication: DYSPEPSIA
     Dosage: UNK
     Route: 048
     Dates: start: 2006
  11. ZITHROMAX [Concomitant]
     Indication: CYSTIC FIBROSIS
     Dosage: UNK
     Route: 048
     Dates: start: 2010
  12. VITAMIN D3 [Concomitant]
     Indication: NUTRITIONAL SUPPLEMENTATION
     Dosage: UNK
     Route: 048
     Dates: start: 2003
  13. THERAGRAN [Concomitant]
     Indication: NUTRITIONAL SUPPLEMENTATION
     Dosage: UNK
     Route: 048
     Dates: start: 2003
  14. VITAMIN E [Concomitant]
     Indication: NUTRITIONAL SUPPLEMENTATION
     Dosage: UNK
     Route: 048
     Dates: start: 2003
  15. LEXAPRO [Concomitant]
     Indication: DEPRESSION
     Dosage: UNK
     Route: 048
     Dates: start: 2012
  16. PULMOZYME [Concomitant]
     Indication: CYSTIC FIBROSIS LUNG
     Dosage: UNK
     Route: 055
     Dates: start: 2009
  17. TOBI [Concomitant]
     Indication: CYSTIC FIBROSIS LUNG
     Dosage: UNK
     Route: 055
     Dates: start: 2010
  18. CAYSTON [Concomitant]
     Indication: CYSTIC FIBROSIS LUNG
     Dosage: UNK
     Route: 055
     Dates: start: 2011
  19. LANTUS [Concomitant]
     Indication: CYSTIC FIBROSIS RELATED DIABETES
     Dosage: UNK
     Route: 058
     Dates: start: 20131215
  20. HUMALOG [Concomitant]
     Indication: CYSTIC FIBROSIS RELATED DIABETES
     Dosage: UNK
     Route: 058
     Dates: start: 20131211
  21. ONDANSETRON [Concomitant]
     Indication: PROPHYLAXIS OF NAUSEA AND VOMITING
     Dosage: UNK
     Route: 048
     Dates: start: 20131202
  22. MEROPENEM [Concomitant]
     Indication: INFECTIVE PULMONARY EXACERBATION OF CYSTIC FIBROSIS
     Dosage: UNK
     Route: 042
     Dates: start: 20131202, end: 20131216
  23. TOBRAMYCIN [Concomitant]
     Indication: INFECTIVE PULMONARY EXACERBATION OF CYSTIC FIBROSIS
     Dosage: UNK
     Route: 042
     Dates: start: 20131202, end: 20131216
  24. CEFTAZIDIME [Concomitant]
     Indication: INFECTIVE PULMONARY EXACERBATION OF CYSTIC FIBROSIS
     Dosage: UNK
     Route: 042
     Dates: start: 20131202, end: 20131216
  25. VX-809 FDC [Suspect]
     Indication: CYSTIC FIBROSIS
     Dosage: UNK
     Route: 048
     Dates: start: 20140219

REACTIONS (1)
  - Infective pulmonary exacerbation of cystic fibrosis [Recovered/Resolved]
